FAERS Safety Report 8811682 (Version 1)
Quarter: 2012Q4

REPORT INFORMATION
  Report Type: 
  Country: IT (occurrence: IT)
  Receive Date: 20120927
  Receipt Date: 20120927
  Transmission Date: 20130627
  Serious: Yes (Hospitalization)
  Sender: FDA-Public Use
  Company Number: IT-TEVA-360067ISR

PATIENT
  Age: 85 Year
  Sex: Female

DRUGS (4)
  1. ALPRAZOLAM [Suspect]
     Indication: ANXIETY
     Dosage: 40 Gtt Daily;
     Route: 048
     Dates: start: 20120821, end: 20120824
  2. CARDURA [Concomitant]
  3. TIKLID [Concomitant]
  4. OLANZAPINA [Concomitant]

REACTIONS (3)
  - Confusional state [Unknown]
  - Asthenia [Unknown]
  - Drug abuse [Unknown]
